FAERS Safety Report 6019226-9 (Version None)
Quarter: 2008Q4

REPORT INFORMATION
  Report Type: 
  Country: None (occurrence: None)
  Receive Date: 20081219
  Receipt Date: 20080814
  Transmission Date: 20090506
  Serious: Yes (Hospitalization)
  Sender: FDA-Public Use
  Company Number: US200808002802

PATIENT
  Age: 85 Year
  Sex: Female

DRUGS (5)
  1. HUMULIN 70/30 [Suspect]
     Dosage: 46 U
  2. HUMULIN R [Suspect]
     Dosage: AS NEEDED
  3. PLAVIX [Concomitant]
  4. ASPIRIN [Concomitant]
  5. VITAMINS [Concomitant]

REACTIONS (1)
  - BLOOD GLUCOSE DECREASED [None]
